FAERS Safety Report 5507911-4 (Version None)
Quarter: 2007Q4

REPORT INFORMATION
  Report Type: 
  Country: None (occurrence: None)
  Receive Date: 20071106
  Receipt Date: 20071024
  Transmission Date: 20080405
  Serious: Yes (Hospitalization, Disabling, Other)
  Sender: FDA-Public Use
  Company Number: US-PFIZER INC-2006149807

PATIENT
  Sex: Male
  Weight: 79.4 kg

DRUGS (3)
  1. CELEBREX [Suspect]
     Indication: RHEUMATOID ARTHRITIS
     Dosage: FREQ:ONCE OR TWICE PER DAY
     Dates: start: 20030201, end: 20030601
  2. BEXTRA [Suspect]
     Indication: RHEUMATOID ARTHRITIS
     Dosage: FREQ:ONCE OR TWICE PER DAY
     Dates: start: 19990101
  3. VIOXX [Suspect]
     Indication: RHEUMATOID ARTHRITIS

REACTIONS (2)
  - CEREBROVASCULAR ACCIDENT [None]
  - MYOCARDIAL INFARCTION [None]
